FAERS Safety Report 20435305 (Version 6)
Quarter: 2022Q4

REPORT INFORMATION
  Report Type: Report from Study
  Country: JP (occurrence: JP)
  Receive Date: 20220206
  Receipt Date: 20221110
  Transmission Date: 20230113
  Serious: Yes (Hospitalization, Disabling, Other)
  Sender: FDA-Public Use
  Company Number: JP-ONO-2021JP027521

PATIENT
  Age: 52 Year
  Sex: Male
  Weight: 77.60 kg

DRUGS (8)
  1. NIVOLUMAB [Suspect]
     Active Substance: NIVOLUMAB
     Indication: Non-small cell lung cancer recurrent
     Route: 041
     Dates: start: 20210202
  2. NIVOLUMAB [Suspect]
     Active Substance: NIVOLUMAB
     Route: 041
     Dates: start: 20210519, end: 20211102
  3. IPILIMUMAB [Suspect]
     Active Substance: IPILIMUMAB
     Indication: Non-small cell lung cancer recurrent
     Dosage: THERE WAS A FEVER BY THE ST COMBINATION AFTER THE DRUG-INDUCED PULMONARY INJURY, AND THERE WAS NO AD
     Route: 041
     Dates: start: 20210202, end: 20211013
  4. IPILIMUMAB [Suspect]
     Active Substance: IPILIMUMAB
  5. CARBOPLATIN [Concomitant]
     Active Substance: CARBOPLATIN
     Indication: Non-small cell lung cancer recurrent
     Route: 065
     Dates: start: 20210202, end: 20210224
  6. CARBOPLATIN [Concomitant]
     Active Substance: CARBOPLATIN
  7. PACLITAXEL [Concomitant]
     Active Substance: PACLITAXEL
     Indication: Non-small cell lung cancer recurrent
     Dates: start: 20210202, end: 20210224
  8. PACLITAXEL [Concomitant]
     Active Substance: PACLITAXEL

REACTIONS (3)
  - Adrenocorticotropic hormone deficiency [Recovering/Resolving]
  - Pulmonary toxicity [Recovering/Resolving]
  - Pyrexia [Unknown]

NARRATIVE: CASE EVENT DATE: 20210607
